FAERS Safety Report 8856448 (Version 1)
Quarter: 2012Q4

REPORT INFORMATION
  Report Type: Spontaneous
  Country: IT (occurrence: None)
  Receive Date: 20121019
  Receipt Date: 20121019
  Transmission Date: 20130627
  Serious: Yes (Hospitalization)
  Sender: FDA-Public Use
  Company Number: GER/ITL/12/0026156

PATIENT
  Age: 50 Year
  Sex: Male

DRUGS (4)
  1. AMLODIPINE [Suspect]
     Indication: DRUG USE FOR UNKNOWN INDICATION
     Dates: start: 20120928, end: 20120928
  2. BIFRIL [Suspect]
     Indication: DRUG USE FOR UNKNOWN INDICATION
     Dosage: 28 dosage forms
     Dates: start: 20120928, end: 20120928
  3. XERISTAR [Suspect]
     Indication: DRUG USE FOR UNKNOWN INDICATION
     Dosage: 28 Dosage forms, Oral
     Route: 048
     Dates: start: 20120928, end: 20120928
  4. EFEXOR [Suspect]
     Indication: DRUG USE FOR UNKNOWN INDICATION
     Dosage: 14 Dosage forms
     Dates: start: 20120928, end: 20120928

REACTIONS (1)
  - Poisoning deliberate [None]
